FAERS Safety Report 4848408-4 (Version None)
Quarter: 2005Q4

REPORT INFORMATION
  Report Type: 
  Country: None (occurrence: None)
  Receive Date: 20051208
  Receipt Date: 20010423
  Transmission Date: 20060501
  Serious: Yes (Hospitalization)
  Sender: FDA-Public Use
  Company Number: FR-ROCHE-259538

PATIENT
  Age: 58 Year
  Sex: Male
  Weight: 61.5 kg

DRUGS (5)
  1. INTERFERON ALFA-2A [Suspect]
     Route: 058
     Dates: start: 20001103, end: 20001229
  2. RIBAVIRIN [Suspect]
     Dosage: WITH FOOD.
     Route: 048
     Dates: start: 20001103, end: 20001229
  3. ABACAVIR [Concomitant]
     Dates: start: 20000710
  4. 3TC [Concomitant]
     Dates: start: 19990415
  5. VIDEX [Concomitant]
     Dates: start: 20000710

REACTIONS (1)
  - RENAL ABSCESS [None]
